FAERS Safety Report 17500118 (Version 2)
Quarter: 2020Q1

REPORT INFORMATION
  Report Type: Spontaneous
  Country: GB (occurrence: GB)
  Receive Date: 20200305
  Receipt Date: 20200326
  Transmission Date: 20200409
  Serious: Yes (Disabling, Other)
  Sender: FDA-Public Use
  Company Number: GB-JNJFOC-20200243826

PATIENT
  Age: 7 Year
  Sex: Male

DRUGS (2)
  1. NUROFEN STRAWBERRY [Concomitant]
     Indication: PRODUCT USED FOR UNKNOWN INDICATION
     Route: 048
  2. PARACETAMOL [Suspect]
     Active Substance: ACETAMINOPHEN
     Indication: INFLUENZA
     Dosage: 5ML MORNING, 5ML AFTERNOON, 5ML NIGHT
     Route: 048
     Dates: start: 20200210, end: 20200210

REACTIONS (6)
  - Hallucination [Recovered/Resolved]
  - Sleep terror [Recovered/Resolved]
  - Tremor [Recovered/Resolved]
  - Malaise [Recovered/Resolved]
  - Peripheral paralysis [Recovered/Resolved]
  - Psychomotor hyperactivity [Recovered/Resolved]

NARRATIVE: CASE EVENT DATE: 20200210
